FAERS Safety Report 8397491-0 (Version None)
Quarter: 2012Q2

REPORT INFORMATION
  Report Type: 
  Country: None (occurrence: None)
  Receive Date: 20120529
  Receipt Date: 20120529
  Transmission Date: 20120825
  Serious: Yes (Hospitalization)
  Sender: FDA-Public Use
  Company Number: None

PATIENT
  Age: 62 Year
  Sex: Male
  Weight: 107.7 kg

DRUGS (1)
  1. DOCETAXEL [Suspect]
     Indication: LUNG NEOPLASM MALIGNANT
     Dosage: 180 MG OTHER IV
     Route: 042
     Dates: start: 20111018, end: 20120403

REACTIONS (2)
  - PULMONARY OEDEMA [None]
  - CAPILLARY LEAK SYNDROME [None]
